FAERS Safety Report 9013748 (Version 1)
Quarter: 2013Q1

REPORT INFORMATION
  Report Type: Spontaneous
  Country: US (occurrence: None)
  Receive Date: 20130108
  Receipt Date: 20130108
  Transmission Date: 20140127
  Serious: Yes (Life-Threatening)
  Sender: FDA-Public Use
  Company Number: None

PATIENT
  Age: 56 Year
  Sex: Female

DRUGS (1)
  1. AMPYRA [Suspect]
     Route: 048

REACTIONS (6)
  - Hypoaesthesia [None]
  - Paraesthesia [None]
  - Convulsion [None]
  - Respiratory arrest [None]
  - Syringomyelia [None]
  - Product compounding quality issue [None]
